FAERS Safety Report 8150110-0 (Version None)
Quarter: 2012Q1

REPORT INFORMATION
  Report Type: 
  Country: None (occurrence: None)
  Receive Date: 20120220
  Receipt Date: 20120209
  Transmission Date: 20120608
  Serious: Yes (Hospitalization)
  Sender: FDA-Public Use
  Company Number: US-BIOGENIDEC-2012BI005133

PATIENT
  Age: 46 Year
  Sex: Female

DRUGS (2)
  1. TYSABRI [Suspect]
     Indication: MULTIPLE SCLEROSIS
     Route: 042
     Dates: start: 20110620, end: 20111114
  2. TYSABRI [Suspect]
     Route: 042
     Dates: start: 20120209

REACTIONS (4)
  - GASTROENTERITIS VIRAL [None]
  - HYPOTENSION [None]
  - PNEUMONIA [None]
  - MULTIPLE SCLEROSIS [None]
